FAERS Safety Report 4420910-9 (Version None)
Quarter: 2004Q3

REPORT INFORMATION
  Report Type: 
  Country: None (occurrence: None)
  Receive Date: 20040804
  Receipt Date: 20040723
  Transmission Date: 20050211
  Serious: Yes (Other)
  Sender: FDA-Public Use
  Company Number: 2004225382CA

PATIENT
  Age: 28 Year
  Sex: Female
  Weight: 99.8 kg

DRUGS (2)
  1. DEPO-PROVERA [Suspect]
     Indication: CONTRACEPTION
     Dosage: 150 MG, FIRST INJECTION, INTRAMUSCULAR; 150 MG, LAST INJECTION, INTRAMUSCULAR
     Route: 030
     Dates: start: 20000612, end: 20000612
  2. DEPO-PROVERA [Suspect]
     Indication: CONTRACEPTION
     Dosage: 150 MG, FIRST INJECTION, INTRAMUSCULAR; 150 MG, LAST INJECTION, INTRAMUSCULAR
     Route: 030
     Dates: start: 20040222, end: 20040222

REACTIONS (3)
  - AMENORRHOEA [None]
  - GALACTORRHOEA [None]
  - PITUITARY TUMOUR BENIGN [None]
